FAERS Safety Report 10222959 (Version 1)
Quarter: 2014Q2

REPORT INFORMATION
  Report Type: Spontaneous
  Country: FR (occurrence: FR)
  Receive Date: 20140607
  Receipt Date: 20140607
  Transmission Date: 20141212
  Serious: Yes (Death, Other)
  Sender: FDA-Public Use
  Company Number: PHHY2014FR067933

PATIENT
  Age: 59 Year
  Sex: Female

DRUGS (2)
  1. VINORELBINE [Suspect]
     Indication: INVASIVE DUCTAL BREAST CARCINOMA
     Dosage: UNK UKN, UNK
  2. TRASTUZUMAB [Suspect]
     Indication: INVASIVE DUCTAL BREAST CARCINOMA
     Dosage: UNK UKN, UNK

REACTIONS (3)
  - Death [Fatal]
  - Metastases to central nervous system [Unknown]
  - Metastases to pancreas [Unknown]
